FAERS Safety Report 9343083 (Version 1)
Quarter: 2013Q2

REPORT INFORMATION
  Report Type: Spontaneous
  Country: GB (occurrence: GB)
  Receive Date: 20130611
  Receipt Date: 20130611
  Transmission Date: 20140414
  Serious: Yes (Other)
  Sender: FDA-Public Use
  Company Number: PHHY2013GB057429

PATIENT
  Age: 68 Year
  Sex: Female
  Weight: 70 kg

DRUGS (14)
  1. CO-AMOXICLAV [Suspect]
     Dates: start: 20130523
  2. AMITRIPTYLINE HYDROCHLORIDE [Concomitant]
     Dates: start: 20130128
  3. CITALOPRAM [Concomitant]
     Dates: start: 20130128
  4. CLONIDINE [Concomitant]
     Dates: start: 20130128
  5. DIAZEPAM [Concomitant]
     Dates: start: 20130128
  6. DIHYDROCODEINE [Concomitant]
     Dates: start: 20130128, end: 20130225
  7. DIHYDROCODEINE [Concomitant]
     Dates: start: 20130318, end: 20130415
  8. GAVISCON ADVANCE [Concomitant]
     Dates: start: 20130128, end: 20130225
  9. GAVISCON ADVANCE [Concomitant]
     Dates: start: 20130318, end: 20130415
  10. GLICLAZIDE [Concomitant]
     Dates: start: 20130128
  11. LEVEMIR [Concomitant]
     Dates: start: 20130128, end: 20130225
  12. SITAGLIPTIN [Concomitant]
     Dates: start: 20130128
  13. ATORVASTATIN [Concomitant]
     Dates: start: 20130206
  14. METFORMIN [Concomitant]
     Dates: start: 20130206

REACTIONS (4)
  - Tachycardia [Unknown]
  - Drug hypersensitivity [Recovering/Resolving]
  - Rash [Unknown]
  - Periorbital oedema [Unknown]
